FAERS Safety Report 7358686-8 (Version None)
Quarter: 2011Q1

REPORT INFORMATION
  Report Type: 
  Country: None (occurrence: None)
  Receive Date: 20110317
  Receipt Date: 20110316
  Transmission Date: 20110831
  Serious: Yes (Other)
  Sender: FDA-Public Use
  Company Number: US-PFIZER INC-2011058008

PATIENT
  Sex: Male
  Weight: 74.83 kg

DRUGS (6)
  1. CHANTIX [Suspect]
     Dosage: 0.5 MG, 2X/DAY
     Dates: start: 20110301
  2. PLAVIX [Concomitant]
     Indication: CARDIAC DISORDER
  3. AMIODARONE [Concomitant]
     Indication: HEART RATE ABNORMAL
     Dosage: 400 MG, 1X/DAY
  4. ZOCOR [Concomitant]
     Indication: BLOOD CHOLESTEROL ABNORMAL
     Dosage: UNK
  5. CHANTIX [Suspect]
     Indication: SMOKING CESSATION THERAPY
     Dosage: 0.5 MG, 1X/DAY
     Dates: start: 20110301, end: 20110301
  6. PLAVIX [Concomitant]
     Indication: ANTICOAGULANT THERAPY
     Dosage: UNK

REACTIONS (6)
  - GASTRIC DISORDER [None]
  - CHEST DISCOMFORT [None]
  - SLEEP DISORDER [None]
  - DEPRESSION [None]
  - NAUSEA [None]
  - RESTLESS LEGS SYNDROME [None]
